FAERS Safety Report 9429623 (Version 1)
Quarter: 2013Q3

REPORT INFORMATION
  Report Type: Spontaneous
  Country: US (occurrence: US)
  Receive Date: 20130730
  Receipt Date: 20130730
  Transmission Date: 20140515
  Serious: No
  Sender: FDA-Public Use
  Company Number: US-ABBOTT-13P-163-1042841-00

PATIENT
  Sex: Male
  Weight: 74.91 kg

DRUGS (1)
  1. NIASPAN [Suspect]
     Indication: BLOOD CHOLESTEROL INCREASED
     Dates: start: 2010

REACTIONS (4)
  - Urinary retention [Recovering/Resolving]
  - Bladder pain [Recovering/Resolving]
  - Pollakiuria [Recovering/Resolving]
  - Pollakiuria [Recovering/Resolving]
